FAERS Safety Report 5073069-1 (Version None)
Quarter: 2006Q3

REPORT INFORMATION
  Report Type: 
  Country: None (occurrence: None)
  Receive Date: 20060802
  Receipt Date: 20060724
  Transmission Date: 20061208
  Serious: Yes (Other)
  Sender: FDA-Public Use
  Company Number: OSCN-PR-0607S-0208

PATIENT

DRUGS (2)
  1. OMNISCAN [Suspect]
     Indication: DRUG USE FOR UNKNOWN INDICATION
     Dosage: 55 ML, SINGLE DOSE, I.V.
     Route: 042
     Dates: start: 20051220, end: 20051220
  2. OMNISCAN [Suspect]
     Indication: DRUG USE FOR UNKNOWN INDICATION
     Dosage: 55 ML, SINGLE DOSE, I.V.
     Route: 042
     Dates: start: 20051227, end: 20051227

REACTIONS (1)
  - NEPHROGENIC FIBROSING DERMOPATHY [None]
